FAERS Safety Report 4940542-3 (Version None)
Quarter: 2006Q1

REPORT INFORMATION
  Report Type: 
  Country: None (occurrence: None)
  Receive Date: 20060112
  Receipt Date: 20051116
  Transmission Date: 20060701
  Serious: Yes (Other)
  Sender: FDA-Public Use
  Company Number: 425321

PATIENT
  Sex: Male

DRUGS (4)
  1. FUZEON [Suspect]
     Indication: DRUG USE FOR UNKNOWN INDICATION
  2. BACTRIM [Concomitant]
  3. KALETRA [Concomitant]
  4. TRIZIVIR [Concomitant]

REACTIONS (1)
  - RASH [None]
